FAERS Safety Report 23393696 (Version 1)
Quarter: 2024Q1

REPORT INFORMATION
  Report Type: Spontaneous
  Country: US (occurrence: US)
  Receive Date: 20240111
  Receipt Date: 20240111
  Transmission Date: 20240410
  Serious: No
  Sender: FDA-Public Use
  Company Number: US-REGENERON PHARMACEUTICALS, INC.-2023-126870

PATIENT
  Sex: Male

DRUGS (2)
  1. EYLEA [Suspect]
     Active Substance: AFLIBERCEPT
     Indication: Retinal vein occlusion
     Dosage: 2 MG, MONTHLY, FORMULATION: GERRESHEIMER, STRENGTH: 2MG/0.05 ML
  2. EYLEA [Suspect]
     Active Substance: AFLIBERCEPT
     Indication: Macular oedema

REACTIONS (3)
  - Product dose omission issue [Unknown]
  - Needle issue [Unknown]
  - Patient uncooperative [Unknown]

NARRATIVE: CASE EVENT DATE: 20230926
